FAERS Safety Report 7586223-1 (Version None)
Quarter: 2011Q2

REPORT INFORMATION
  Report Type: 
  Country: None (occurrence: None)
  Receive Date: 20110624
  Receipt Date: 20110614
  Transmission Date: 20111010
  Serious: Yes (Other)
  Sender: FDA-Public Use
  Company Number: 2011SP027729

PATIENT
  Age: 28 Year
  Sex: Male

DRUGS (2)
  1. HERACILLIN [Concomitant]
  2. NASONEX [Suspect]
     Indication: NASAL POLYPS
     Dates: start: 20110523, end: 20110614

REACTIONS (4)
  - PARAESTHESIA [None]
  - PHARYNGEAL OEDEMA [None]
  - LOCALISED INFECTION [None]
  - CHEST PAIN [None]
